FAERS Safety Report 18779809 (Version 3)
Quarter: 2021Q1

REPORT INFORMATION
  Report Type: Report from Study
  Country: None (occurrence: US)
  Receive Date: 20210125
  Receipt Date: 20210202
  Transmission Date: 20210419
  Serious: Yes (Hospitalization, Other)
  Sender: FDA-Public Use
  Company Number: US-ABBVIE-20K-163-3687651-00

PATIENT
  Age: 62 Year
  Sex: Male

DRUGS (4)
  1. IMBRUVICA [Suspect]
     Active Substance: IBRUTINIB
     Route: 048
  2. IMBRUVICA [Suspect]
     Active Substance: IBRUTINIB
     Route: 048
     Dates: start: 201805
  3. IMBRUVICA [Suspect]
     Active Substance: IBRUTINIB
     Indication: CHRONIC LYMPHOCYTIC LEUKAEMIA (IN REMISSION)
     Route: 048
     Dates: start: 20180517
  4. IMBRUVICA [Suspect]
     Active Substance: IBRUTINIB
     Indication: CHRONIC LYMPHOCYTIC LEUKAEMIA
     Route: 048
     Dates: start: 20200514

REACTIONS (5)
  - Depression [Not Recovered/Not Resolved]
  - Axillary mass [Not Recovered/Not Resolved]
  - Nodule [Not Recovered/Not Resolved]
  - Hospitalisation [Not Recovered/Not Resolved]
  - Knee arthroplasty [Not Recovered/Not Resolved]

NARRATIVE: CASE EVENT DATE: 202010
